FAERS Safety Report 6160890-1 (Version None)
Quarter: 2009Q2

REPORT INFORMATION
  Report Type: 
  Country: None (occurrence: None)
  Receive Date: 20090417
  Receipt Date: 20090417
  Transmission Date: 20091009
  Serious: Yes (Hospitalization)
  Sender: FDA-Public Use
  Company Number: None

PATIENT
  Age: 93 Year
  Sex: Female
  Weight: 48 kg

DRUGS (9)
  1. DIGOXIN [Suspect]
     Indication: ATRIAL FIBRILLATION
     Dosage: 125 MCG DAILY PO PRIOR TO ADMISSION
     Route: 048
  2. CARVEDILOL [Concomitant]
  3. FUROSEMIDE [Concomitant]
  4. POTASSIUM CHLORIDE [Concomitant]
  5. FERROUS SULFATE TAB [Concomitant]
  6. ASPIRIN [Concomitant]
  7. GLYBURIDE [Concomitant]
  8. TIMOLOL OPHTHALMIC SOLUTION [Concomitant]
  9. LATANOPROST [Concomitant]

REACTIONS (4)
  - ASTHENIA [None]
  - DIABETES MELLITUS INADEQUATE CONTROL [None]
  - THERAPEUTIC AGENT TOXICITY [None]
  - URINARY TRACT INFECTION [None]
